FAERS Safety Report 4353057-0 (Version None)
Quarter: 2004Q2

REPORT INFORMATION
  Report Type: 
  Country: None (occurrence: None)
  Receive Date: 20040430
  Receipt Date: 20040227
  Transmission Date: 20050107
  Serious: No
  Sender: FDA-Public Use
  Company Number: 204994

PATIENT
  Age: 33 Year
  Sex: Female
  Weight: 93 kg

DRUGS (8)
  1. XOLAIR [Suspect]
     Indication: ASTHMA
     Dosage: 225 MG, Q2W, SUBCUTANEOUS
     Route: 058
     Dates: start: 20031121, end: 20040227
  2. FLOVENT [Concomitant]
  3. ZYRTEC [Concomitant]
  4. NASONEX [Concomitant]
  5. XOPENEX [Concomitant]
  6. FORADIL [Concomitant]
  7. PREMARIN [Concomitant]
  8. PREVACID [Concomitant]

REACTIONS (3)
  - ERYTHEMA [None]
  - PRURITUS [None]
  - THROAT IRRITATION [None]
